FAERS Safety Report 13936211 (Version 1)
Quarter: 2017Q3

REPORT INFORMATION
  Report Type: Spontaneous
  Country: US (occurrence: US)
  Receive Date: 20170905
  Receipt Date: 20170905
  Transmission Date: 20171127
  Serious: Yes (Other)
  Sender: FDA-Public Use
  Company Number: None

PATIENT
  Age: 62 Year
  Sex: Female
  Weight: 101.25 kg

DRUGS (17)
  1. SYNTHROID [Concomitant]
     Active Substance: LEVOTHYROXINE SODIUM
  2. VITAMIN SUPER B COMPLEX [Concomitant]
  3. TRAZODONE [Concomitant]
     Active Substance: TRAZODONE HYDROCHLORIDE
  4. METHOTREXATE. [Concomitant]
     Active Substance: METHOTREXATE
  5. VENFLEXINE [Concomitant]
  6. PREDIZONE [Concomitant]
  7. FOLIC ACID. [Concomitant]
     Active Substance: FOLIC ACID
  8. PENICILLIN [Concomitant]
     Active Substance: PENICILLIN
  9. VITAMIN D3 [Concomitant]
     Active Substance: CHOLECALCIFEROL
  10. PROBIOTIC [Concomitant]
     Active Substance: PROBIOTICS NOS
  11. SPIROLACTINE [Concomitant]
  12. OCCUPIVITE [Concomitant]
  13. MUCINEX [Concomitant]
     Active Substance: GUAIFENESIN
  14. STELARA [Suspect]
     Active Substance: USTEKINUMAB
     Indication: PSORIATIC ARTHROPATHY
     Dosage: OTHER FREQUENCY:1SYRINGE EVERY 12;?
     Route: 058
     Dates: end: 20170408
  15. GABEPENTIN [Concomitant]
  16. ZITHROMAX [Concomitant]
     Active Substance: AZITHROMYCIN DIHYDRATE
  17. CODEINE COUGH MEDICINE [Concomitant]
     Active Substance: CODEINE

REACTIONS (5)
  - Bronchitis [None]
  - Sinusitis [None]
  - Ear infection [None]
  - Jaw disorder [None]
  - Drug ineffective [None]

NARRATIVE: CASE EVENT DATE: 20170703
